FAERS Safety Report 6439086-1 (Version None)
Quarter: 2009Q4

REPORT INFORMATION
  Report Type: 
  Country: None (occurrence: None)
  Receive Date: 20091113
  Receipt Date: 20091110
  Transmission Date: 20100525
  Serious: Yes (Congenital Anomaly, Other)
  Sender: FDA-Public Use
  Company Number: FR-TEVA-210863ISR

PATIENT
  Sex: Female

DRUGS (4)
  1. TOPIRAMATE [Suspect]
     Route: 064
  2. LAMOTRIGINE [Concomitant]
     Route: 064
  3. CLONAZEPAM [Concomitant]
     Route: 064
  4. OXCARBAZEPINE [Concomitant]
     Route: 064

REACTIONS (1)
  - CRANIOFACIAL DYSOSTOSIS [None]
